FAERS Safety Report 5171041-4 (Version None)
Quarter: 2006Q4

REPORT INFORMATION
  Report Type: 
  Country: None (occurrence: None)
  Receive Date: 20061213
  Receipt Date: 20060206
  Transmission Date: 20070319
  Serious: Yes (Other)
  Sender: FDA-Public Use
  Company Number: US-GLAXOSMITHKLINE-A0592526A

PATIENT
  Age: 13 Year
  Sex: Male

DRUGS (10)
  1. PAXIL [Suspect]
     Indication: OBSESSIVE-COMPULSIVE DISORDER
     Route: 048
     Dates: start: 19980601
  2. PAXIL CR [Suspect]
     Indication: OBSESSIVE-COMPULSIVE DISORDER
     Route: 048
     Dates: start: 20020901
  3. PAROXETINE HYDROCHLORIDE [Suspect]
     Indication: OBSESSIVE-COMPULSIVE DISORDER
     Dosage: 20MG PER DAY
     Route: 048
  4. PROZAC [Concomitant]
     Indication: OBSESSIVE-COMPULSIVE DISORDER
     Dates: start: 19970701, end: 19980601
  5. BUSPAR [Concomitant]
     Dates: end: 20020901
  6. ISONIAZID [Concomitant]
     Indication: TUBERCULOSIS SKIN TEST POSITIVE
     Route: 048
  7. GEODON [Concomitant]
     Dosage: 20MG TWICE PER DAY
  8. STRATTERA [Concomitant]
     Dates: end: 20030201
  9. MARIJUANA [Concomitant]
  10. ALCOHOL [Concomitant]

REACTIONS (18)
  - ANXIETY [None]
  - FATIGUE [None]
  - FEELING OF DESPAIR [None]
  - FLAT AFFECT [None]
  - HEADACHE [None]
  - HOMICIDAL IDEATION [None]
  - HYPERHIDROSIS [None]
  - INTENTIONAL OVERDOSE [None]
  - INTENTIONAL SELF-INJURY [None]
  - OBSESSIVE THOUGHTS [None]
  - PARANOIA [None]
  - SELF MUTILATION [None]
  - SEXUAL DYSFUNCTION [None]
  - SUICIDAL IDEATION [None]
  - SUICIDE ATTEMPT [None]
  - THINKING ABNORMAL [None]
  - WEIGHT DECREASED [None]
  - WEIGHT INCREASED [None]
